FAERS Safety Report 15360248 (Version 3)
Quarter: 2018Q3

REPORT INFORMATION
  Report Type: Spontaneous
  Country: DE (occurrence: DE)
  Receive Date: 20180907
  Receipt Date: 20180926
  Transmission Date: 20181010
  Serious: Yes (Hospitalization, Other)
  Sender: FDA-Public Use
  Company Number: DE-BIOGEN-2018BI00628456

PATIENT
  Age: 28 Year
  Sex: Female

DRUGS (1)
  1. ZINBRYTA [Suspect]
     Active Substance: DACLIZUMAB
     Indication: RELAPSING-REMITTING MULTIPLE SCLEROSIS
     Route: 058
     Dates: start: 201706, end: 201803

REACTIONS (4)
  - Lymphadenitis [Unknown]
  - Encephalitis autoimmune [Recovered/Resolved with Sequelae]
  - Anti-thyroid antibody positive [Unknown]
  - Borrelia test positive [Unknown]

NARRATIVE: CASE EVENT DATE: 20180511
